FAERS Safety Report 6733249-3 (Version None)
Quarter: 2010Q2

REPORT INFORMATION
  Report Type: 
  Country: None (occurrence: None)
  Receive Date: 20100520
  Receipt Date: 20100511
  Transmission Date: 20101027
  Serious: No
  Sender: FDA-Public Use
  Company Number: 2009BI036364

PATIENT
  Age: 38 Year
  Sex: Female

DRUGS (1)
  1. TYSABRI [Suspect]
     Indication: MULTIPLE SCLEROSIS
     Route: 042
     Dates: start: 20080320

REACTIONS (6)
  - ABASIA [None]
  - COORDINATION ABNORMAL [None]
  - ENDODONTIC PROCEDURE [None]
  - GAIT DISTURBANCE [None]
  - TOOTH REPAIR [None]
  - TOOTHACHE [None]
